FAERS Safety Report 9046961 (Version 1)
Quarter: 2013Q1

REPORT INFORMATION
  Report Type: Spontaneous
  Country: US (occurrence: None)
  Receive Date: 20130129
  Receipt Date: 20130129
  Transmission Date: 20140127
  Serious: Yes (Hospitalization, Disabling, Other)
  Sender: FDA-Public Use
  Company Number: None

PATIENT
  Age: 41 Year
  Sex: Male
  Weight: 149.69 kg

DRUGS (8)
  1. CLINDAMYCIN [Suspect]
     Indication: CELLULITIS
     Dosage: EVERY 6 HOURS
     Route: 041
     Dates: start: 20110302, end: 20110308
  2. CLINDAMYCIN [Suspect]
     Indication: ADVERSE DRUG REACTION
     Route: 041
  3. KEFLEX [Concomitant]
  4. AMOXICILLIN [Concomitant]
  5. BACTRIM [Concomitant]
  6. ROCEPHIN [Concomitant]
  7. GENTAM [Concomitant]
  8. VANCOMYCIN [Concomitant]

REACTIONS (6)
  - Back pain [None]
  - Renal pain [None]
  - Rash generalised [None]
  - Tremor [None]
  - Conversion disorder [None]
  - Stevens-Johnson syndrome [None]
